FAERS Safety Report 20389865 (Version 3)
Quarter: 2022Q3

REPORT INFORMATION
  Report Type: Spontaneous
  Country: US (occurrence: None)
  Receive Date: 20220128
  Receipt Date: 20220715
  Transmission Date: 20221027
  Serious: Yes (Disabling, Other)
  Sender: FDA-Public Use
  Company Number: 2022A037398

PATIENT
  Age: 41 Year
  Sex: Female
  Weight: 155.4 kg

DRUGS (53)
  1. NEXIUM [Suspect]
     Active Substance: ESOMEPRAZOLE MAGNESIUM
     Indication: Gastrooesophageal reflux disease
     Route: 048
     Dates: start: 2006, end: 2014
  2. NEXIUM [Suspect]
     Active Substance: ESOMEPRAZOLE MAGNESIUM
     Indication: Gastrooesophageal reflux disease
     Route: 048
     Dates: start: 2006, end: 2014
  3. NEXIUM [Suspect]
     Active Substance: ESOMEPRAZOLE MAGNESIUM
     Indication: Gastrooesophageal reflux disease
     Dosage: GENERIC
     Route: 065
     Dates: start: 2015, end: 2019
  4. PRILOSEC OTC [Suspect]
     Active Substance: OMEPRAZOLE MAGNESIUM
     Indication: Gastrooesophageal reflux disease
     Route: 048
     Dates: start: 2006, end: 2014
  5. PRILOSEC OTC [Suspect]
     Active Substance: OMEPRAZOLE MAGNESIUM
     Indication: Gastrooesophageal reflux disease
     Route: 048
     Dates: start: 20060101, end: 20111231
  6. OMEPRAZOLE [Suspect]
     Active Substance: OMEPRAZOLE
     Indication: Gastrooesophageal reflux disease
     Dosage: GENERIC
     Route: 065
     Dates: start: 2011
  7. PROTONIX [Suspect]
     Active Substance: PANTOPRAZOLE SODIUM
     Indication: Gastrooesophageal reflux disease
     Route: 065
     Dates: start: 2013, end: 2019
  8. PROTONIX [Suspect]
     Active Substance: PANTOPRAZOLE SODIUM
     Indication: Gastrooesophageal reflux disease
     Dosage: GENERIC
     Route: 065
     Dates: start: 2013, end: 2019
  9. CELECOXIB [Concomitant]
     Active Substance: CELECOXIB
     Indication: Pain
     Route: 065
     Dates: start: 2015, end: 2019
  10. CELEBREX [Concomitant]
     Active Substance: CELECOXIB
     Indication: Pain
     Route: 065
     Dates: start: 2014
  11. HYDROCHLOROTHIAZIDE [Concomitant]
     Active Substance: HYDROCHLOROTHIAZIDE
     Indication: Hypertension
     Route: 065
     Dates: start: 2011, end: 2014
  12. ATORVASTATIN [Concomitant]
     Active Substance: ATORVASTATIN
     Indication: Blood cholesterol abnormal
     Route: 065
     Dates: start: 2013, end: 2019
  13. PENICILLIN [Concomitant]
     Active Substance: PENICILLIN
     Indication: Infection
     Route: 065
     Dates: start: 2017
  14. TRAMADOL [Concomitant]
     Active Substance: TRAMADOL
     Indication: Pain
     Route: 065
     Dates: start: 2007, end: 2019
  15. NAPROXEN [Concomitant]
     Active Substance: NAPROXEN
     Indication: Pain
     Route: 065
     Dates: start: 2006
  16. NAPROXEN [Concomitant]
     Active Substance: NAPROXEN
     Indication: Pain
     Route: 065
     Dates: start: 2010, end: 2014
  17. AZITHROMYCIN [Concomitant]
     Active Substance: AZITHROMYCIN
     Indication: Infection
     Route: 065
     Dates: start: 2010, end: 2014
  18. LEVOFLOXACIN [Concomitant]
     Active Substance: LEVOFLOXACIN
     Indication: Infection
     Route: 065
     Dates: start: 2014
  19. ABACAVIR [Concomitant]
     Active Substance: ABACAVIR
     Indication: Infection
     Route: 065
     Dates: start: 2013, end: 2014
  20. LISINOPRIL [Concomitant]
     Active Substance: LISINOPRIL
     Indication: Hypertension
     Route: 065
     Dates: start: 2011, end: 2014
  21. VITAMINS [Concomitant]
     Active Substance: VITAMINS
     Indication: Hypovitaminosis
     Route: 065
     Dates: start: 2014, end: 2016
  22. VITAMIN D [Concomitant]
     Active Substance: VITAMIN D NOS
     Indication: Vitamin D deficiency
     Route: 065
     Dates: start: 2016
  23. ASPIRIN [Concomitant]
     Active Substance: ASPIRIN
  24. TAB-A-VITE [Concomitant]
     Indication: Vitamin supplementation
     Route: 065
     Dates: start: 2012, end: 2014
  25. IBUPROFEN [Concomitant]
     Active Substance: IBUPROFEN
     Indication: Pain
     Route: 065
     Dates: start: 2011, end: 2012
  26. RANITIDINE [Concomitant]
     Active Substance: RANITIDINE
     Route: 065
     Dates: start: 2013, end: 2019
  27. MILK OF MAGNESIA [Concomitant]
     Active Substance: MAGNESIUM HYDROXIDE
     Route: 065
     Dates: start: 2011
  28. CLONAZEPAM [Concomitant]
     Active Substance: CLONAZEPAM
  29. DARUNAVIR [Concomitant]
     Active Substance: DARUNAVIR
  30. ARIPIPRAZOLE [Concomitant]
     Active Substance: ARIPIPRAZOLE
  31. ALBUTEROL [Concomitant]
     Active Substance: ALBUTEROL
  32. BUDESONIDE [Concomitant]
     Active Substance: BUDESONIDE
  33. BUSPIRONE [Concomitant]
     Active Substance: BUSPIRONE HYDROCHLORIDE
  34. CETIRIZINE HYDROCHLORIDE [Concomitant]
     Active Substance: CETIRIZINE HYDROCHLORIDE
  35. DICYCLOMINE [Concomitant]
     Active Substance: DICYCLOMINE HYDROCHLORIDE
  36. DOXEPIN [Concomitant]
     Active Substance: DOXEPIN
  37. DOCUSATE [Concomitant]
     Active Substance: DOCUSATE
  38. LAMIVUDINE [Concomitant]
     Active Substance: LAMIVUDINE
  39. METOCLOPRAMIDE [Concomitant]
     Active Substance: METOCLOPRAMIDE
  40. LEVETIRACETAM [Concomitant]
     Active Substance: LEVETIRACETAM
  41. MOMETASONE [Concomitant]
     Active Substance: MOMETASONE
  42. RITONAVIR [Concomitant]
     Active Substance: RITONAVIR
  43. NICOTINE [Concomitant]
     Active Substance: NICOTINE
  44. SERTRALINE [Concomitant]
     Active Substance: SERTRALINE HYDROCHLORIDE
  45. SUMATRIPTAN [Concomitant]
     Active Substance: SUMATRIPTAN
  46. PROVENTIL [Concomitant]
     Active Substance: ALBUTEROL
  47. FIORICET [Concomitant]
     Active Substance: ACETAMINOPHEN\BUTALBITAL\CAFFEINE
  48. TRUVADA [Concomitant]
     Active Substance: EMTRICITABINE\TENOFOVIR DISOPROXIL FUMARATE
  49. PREDNISONE [Concomitant]
     Active Substance: PREDNISONE
  50. FLUTICASONE [Concomitant]
     Active Substance: FLUTICASONE
  51. NIFEDIPINE [Concomitant]
     Active Substance: NIFEDIPINE
  52. SENNA [Concomitant]
     Active Substance: SENNA LEAF\SENNOSIDES\SENNOSIDES A AND B
  53. LINACLOTIDE [Concomitant]
     Active Substance: LINACLOTIDE

REACTIONS (4)
  - Acute kidney injury [Not Recovered/Not Resolved]
  - Chronic kidney disease [Not Recovered/Not Resolved]
  - Renal failure [Unknown]
  - Gastrooesophageal reflux disease [Not Recovered/Not Resolved]

NARRATIVE: CASE EVENT DATE: 20100101
